FAERS Safety Report 9933546 (Version 1)
Quarter: 2014Q1

REPORT INFORMATION
  Report Type: Spontaneous
  Country: FR (occurrence: None)
  Receive Date: 20140226
  Receipt Date: 20140226
  Transmission Date: 20141002
  Serious: Yes (Other)
  Sender: FDA-Public Use
  Company Number: CO-KP-FR-2014-015

PATIENT
  Age: 2 Day
  Sex: Male

DRUGS (1)
  1. CLONIDINE (CLONIDINE) [Suspect]

REACTIONS (11)
  - Exposure during pregnancy [None]
  - Exposure during breast feeding [None]
  - Nervous system disorder [None]
  - Toxicity to various agents [None]
  - Depressed level of consciousness [None]
  - Somnolence [None]
  - Hypotonia neonatal [None]
  - Convulsion neonatal [None]
  - Encephalitis [None]
  - Infection [None]
  - Metabolic disorder [None]
